FAERS Safety Report 24029671 (Version 1)
Quarter: 2024Q2

REPORT INFORMATION
  Report Type: Spontaneous
  Country: DE (occurrence: DE)
  Receive Date: 20240628
  Receipt Date: 20240628
  Transmission Date: 20240716
  Serious: Yes (Hospitalization, Other)
  Sender: FDA-Public Use
  Company Number: DE-PFIZER INC-202400180860

PATIENT
  Age: 8 Decade
  Sex: Male
  Weight: 82 kg

DRUGS (8)
  1. PEMBROLIZUMAB [Suspect]
     Active Substance: PEMBROLIZUMAB
     Dosage: UNK
  2. SUTENT [Suspect]
     Active Substance: SUNITINIB MALATE
     Indication: Metastatic renal cell carcinoma
     Dosage: 50 MG, CYCLIC (2/1 REGIMEN)
     Route: 048
     Dates: start: 20240214, end: 20240408
  3. METHYLPREDNISOLONE [Concomitant]
     Active Substance: METHYLPREDNISOLONE
     Indication: Autoimmune lung disease
     Dosage: 12 MG, 1X/DAY (1-0-0)
  4. ERYTHROPOIETIN [Concomitant]
     Active Substance: ERYTHROPOIETIN
     Dosage: 3000 IU, 1X/DAY (1-0-0)
  5. DOXAZOSIN [Concomitant]
     Active Substance: DOXAZOSIN MESYLATE
     Dosage: 2 MG, 1X/DAY (1-0-0)
  6. CLONIDINE [Concomitant]
     Active Substance: CLONIDINE
     Dosage: 150 MG, 2X/DAY (1-0-1)
  7. METOPROLOL [Concomitant]
     Active Substance: METOPROLOL
     Dosage: 95 MG, 2X/DAY (1-0-1)
  8. PANTOPRAZOLE [Concomitant]
     Active Substance: PANTOPRAZOLE
     Dosage: 40 MG, 1X/DAY (1-0-0)

REACTIONS (4)
  - Renal failure [Recovered/Resolved]
  - Autoimmune nephritis [Unknown]
  - Off label use [Unknown]
  - Product use issue [Unknown]

NARRATIVE: CASE EVENT DATE: 20240214
